FAERS Safety Report 9855774 (Version 2)
Quarter: 2014Q1

REPORT INFORMATION
  Report Type: Spontaneous
  Country: US (occurrence: US)
  Receive Date: 20140130
  Receipt Date: 20140321
  Transmission Date: 20141002
  Serious: Yes (Death)
  Sender: FDA-Public Use
  Company Number: US-CELGENEUS-163-21880-14013791

PATIENT
  Age: 70 Year
  Sex: Male

DRUGS (5)
  1. REVLIMID [Suspect]
     Indication: PLASMA CELL MYELOMA
     Dosage: 25 MILLIGRAM
     Route: 048
     Dates: start: 20130819, end: 2013
  2. REVLIMID [Suspect]
     Indication: OSTEOLYSIS
     Dosage: 15 MILLIGRAM
     Route: 048
     Dates: start: 201310, end: 2013
  3. REVLIMID [Suspect]
     Dosage: 10 MILLIGRAM
     Route: 048
     Dates: start: 201311, end: 20131202
  4. DEXAMETHASONE [Concomitant]
     Indication: PRODUCT USED FOR UNKNOWN INDICATION
     Dosage: 40 MILLIGRAM
     Route: 065
     Dates: start: 201308, end: 201312
  5. AREDIA [Concomitant]
     Indication: OSTEOLYSIS
     Route: 065
     Dates: start: 201308, end: 201310

REACTIONS (1)
  - Plasma cell myeloma [Fatal]
